FAERS Safety Report 5712521-X (Version None)
Quarter: 2008Q2

REPORT INFORMATION
  Report Type: 
  Country: None (occurrence: None)
  Receive Date: 20080418
  Receipt Date: 20080411
  Transmission Date: 20081010
  Serious: Yes (Other)
  Sender: FDA-Public Use
  Company Number: TPA2008A00493

PATIENT
  Age: 55 Year
  Sex: Female

DRUGS (1)
  1. ACTOS [Suspect]
     Indication: DIABETES MELLITUS
     Dosage: 1 IN 1 D, PER ORAL
     Route: 048
     Dates: end: 20080327

REACTIONS (3)
  - CREATININE RENAL CLEARANCE DECREASED [None]
  - OEDEMA PERIPHERAL [None]
  - RENAL DISORDER [None]
